FAERS Safety Report 7361579-3 (Version None)
Quarter: 2011Q1

REPORT INFORMATION
  Report Type: 
  Country: None (occurrence: None)
  Receive Date: 20110318
  Receipt Date: 20110315
  Transmission Date: 20110831
  Serious: Yes (Other)
  Sender: FDA-Public Use
  Company Number: ES-PFIZER INC-2011056612

PATIENT
  Sex: Female

DRUGS (6)
  1. SERTRALINE [Concomitant]
     Indication: DEPRESSION
     Dosage: 100 MG, UNK
  2. EUTIROX [Concomitant]
     Dosage: 88 UNK
  3. EUTIROX [Concomitant]
     Indication: HYPOTHYROIDISM
     Dosage: 75 UNK
     Dates: end: 20101201
  4. CHAMPIX [Suspect]
     Indication: SMOKING CESSATION THERAPY
     Dosage: UNK
     Route: 048
     Dates: start: 20101201, end: 20101227
  5. EUTIROX [Concomitant]
     Dosage: 100 UNK
     Dates: start: 20101201
  6. NOREBOX [Concomitant]
     Indication: DEPRESSION
     Dosage: 4 MG, UNK

REACTIONS (3)
  - CHEST DISCOMFORT [None]
  - SUPRAVENTRICULAR EXTRASYSTOLES [None]
  - PALPITATIONS [None]
